FAERS Safety Report 4634931-4 (Version None)
Quarter: 2005Q2

REPORT INFORMATION
  Report Type: 
  Country: None (occurrence: None)
  Receive Date: 20050414
  Receipt Date: 20050406
  Transmission Date: 20051028
  Serious: Yes (Disabling, Congenital Anomaly)
  Sender: FDA-Public Use
  Company Number: US-JNJFOC-20050203350

PATIENT

DRUGS (2)
  1. TOPAMAX [Suspect]
  2. ZOLOFT [Concomitant]

REACTIONS (5)
  - ARNOLD-CHIARI MALFORMATION [None]
  - DRUG EXPOSURE DURING PREGNANCY [None]
  - HYDROCEPHALUS [None]
  - MENINGOMYELOCELE [None]
  - SPINA BIFIDA [None]
